FAERS Safety Report 21014820 (Version 2)
Quarter: 2022Q3

REPORT INFORMATION
  Report Type: Report from Study
  Country: US (occurrence: US)
  Receive Date: 20220628
  Receipt Date: 20220718
  Transmission Date: 20221026
  Serious: Yes (Hospitalization, Other)
  Sender: FDA-Public Use
  Company Number: US-GILEAD-2022-0586570

PATIENT
  Age: 67 Year
  Sex: Male

DRUGS (11)
  1. AZTREONAM LYSINE [Suspect]
     Active Substance: AZTREONAM LYSINE
     Indication: Cystic fibrosis lung
     Dosage: 75 MG, TID 28 DAYS ON/28 DAYS OFF
     Route: 055
  2. VITAMIN B6 [Concomitant]
     Active Substance: PYRIDOXINE HYDROCHLORIDE
  3. VITAMIN E [Concomitant]
     Active Substance: .ALPHA.-TOCOPHEROL
  4. IRON [Concomitant]
     Active Substance: IRON
  5. BIOTIN [Concomitant]
     Active Substance: BIOTIN
  6. CALCIUM [Concomitant]
     Active Substance: CALCIUM
  7. VITAMINS [Concomitant]
     Active Substance: VITAMINS
  8. TRIKAFTA [Concomitant]
     Active Substance: ELEXACAFTOR\IVACAFTOR\TEZACAFTOR
  9. PULMOZYME [Concomitant]
     Active Substance: DORNASE ALFA
  10. TOBRAMYCIN [Concomitant]
     Active Substance: TOBRAMYCIN
  11. MEROPENEM [Concomitant]
     Active Substance: MEROPENEM

REACTIONS (2)
  - Infection [Unknown]
  - Pneumothorax [Unknown]
